FAERS Safety Report 4338594-7 (Version None)
Quarter: 2004Q2

REPORT INFORMATION
  Report Type: 
  Country: None (occurrence: None)
  Receive Date: 20040409
  Receipt Date: 20040329
  Transmission Date: 20050107
  Serious: No
  Sender: FDA-Public Use
  Company Number: 04P-167-0255632-00

PATIENT
  Age: 52 Year
  Sex: Female
  Weight: 63 kg

DRUGS (4)
  1. SEVOFLURANE [Suspect]
     Indication: GENERAL ANAESTHESIA
     Dosage: 1.5-8%, ONCE, INHALATION
     Dates: start: 20040105, end: 20040105
  2. NAPROXEN [Concomitant]
  3. CARBAMAZEPINE [Concomitant]
  4. OXYGEN [Concomitant]

REACTIONS (2)
  - GRAND MAL CONVULSION [None]
  - POST PROCEDURAL COMPLICATION [None]
